FAERS Safety Report 25687597 (Version 1)
Quarter: 2025Q3

REPORT INFORMATION
  Report Type: Other
  Country: JP (occurrence: JP)
  Receive Date: 20250817
  Receipt Date: 20250817
  Transmission Date: 20251021
  Serious: Yes (Disabling, Other)
  Sender: DEXCEL LTD.
  Company Number: JP-DEXPHARM-2025-4222

PATIENT
  Age: 8 Year
  Sex: Female

DRUGS (3)
  1. DEXAMETHASONE [Suspect]
     Active Substance: DEXAMETHASONE
  2. PREDNISOLONE [Suspect]
     Active Substance: PREDNISOLONE
  3. ASPARAGINASE [Suspect]
     Active Substance: ASPARAGINASE

REACTIONS (5)
  - Osteoporosis [Unknown]
  - Osteonecrosis [Unknown]
  - Foot fracture [Unknown]
  - Upper limb fracture [Unknown]
  - Fractured sacrum [Unknown]
